FAERS Safety Report 21881970 (Version 1)
Quarter: 2023Q1

REPORT INFORMATION
  Report Type: Spontaneous
  Country: PT (occurrence: PT)
  Receive Date: 20230119
  Receipt Date: 20230119
  Transmission Date: 20230418
  Serious: Yes (Hospitalization, Other)
  Sender: FDA-Public Use
  Company Number: PT-ALS-000855

PATIENT
  Age: 66 Year
  Sex: Female

DRUGS (3)
  1. QUETIAPINE [Suspect]
     Active Substance: QUETIAPINE
     Indication: Major depression
     Route: 065
  2. ESCITALOPRAM [Suspect]
     Active Substance: ESCITALOPRAM OXALATE
     Indication: Major depression
     Route: 065
  3. OLANZAPINE [Suspect]
     Active Substance: OLANZAPINE
     Indication: Product used for unknown indication
     Dosage: LOW DOSE OLANZAPINE (5 MG/D) TO PREVENT WITHDRAWAL SYMPTOMS OF QUETIAPINE.
     Route: 065

REACTIONS (4)
  - Withdrawal catatonia [Recovered/Resolved]
  - Oedema peripheral [Recovered/Resolved]
  - Somnolence [Recovered/Resolved]
  - Urinary retention [Recovered/Resolved]
